FAERS Safety Report 24713307 (Version 1)
Quarter: 2024Q4

REPORT INFORMATION
  Report Type: Spontaneous
  Country: US (occurrence: US)
  Receive Date: 20241209
  Receipt Date: 20241209
  Transmission Date: 20250115
  Serious: No
  Sender: REGENERON
  Company Number: US-REGENERON PHARMACEUTICALS, INC.-2024-024696

PATIENT
  Sex: Male

DRUGS (4)
  1. EYLEA [Suspect]
     Active Substance: AFLIBERCEPT
     Indication: Neovascular age-related macular degeneration
     Dosage: 2 MG, EVERY 11 WEEKS, INTO RIGHT EYE, FORMULATION: GERRESHEIMER
     Dates: start: 202003
  2. EYLEA [Suspect]
     Active Substance: AFLIBERCEPT
     Dosage: 2 MG, EVERY 10 WEEKS, INTO RIGHT EYE, FORMULATION: GERRESHEIMER
  3. EYLEA [Suspect]
     Active Substance: AFLIBERCEPT
     Dosage: 2 MG, EVERY 4 WEEKS, INTO LEFT EYE, FORMULATION: GERRESHEIMER
     Dates: end: 20230808
  4. AVASTIN [Concomitant]
     Active Substance: BEVACIZUMAB
     Indication: Neovascular age-related macular degeneration
     Dosage: UNK, LEFT EYE

REACTIONS (3)
  - Eye disorder [Not Recovered/Not Resolved]
  - Unevaluable event [Unknown]
  - Drug ineffective [Unknown]
